FAERS Safety Report 19866333 (Version 1)
Quarter: 2021Q3

REPORT INFORMATION
  Report Type: Spontaneous
  Country: GB (occurrence: GB)
  Receive Date: 20210921
  Receipt Date: 20210921
  Transmission Date: 20211014
  Serious: Yes (Hospitalization, Other)
  Sender: FDA-Public Use
  Company Number: GB-BRACCO-2021GB04006

PATIENT
  Age: 52 Year
  Sex: Female

DRUGS (1)
  1. PROHANCE [Suspect]
     Active Substance: GADOTERIDOL
     Indication: MAGNETIC RESONANCE IMAGING HEAD
     Dosage: 18 ML, SINGLE
     Route: 042
     Dates: start: 20210910, end: 20210910

REACTIONS (4)
  - Myocardial infarction [Unknown]
  - Paraesthesia oral [Recovered/Resolved with Sequelae]
  - Kounis syndrome [Unknown]
  - Malaise [Recovered/Resolved with Sequelae]

NARRATIVE: CASE EVENT DATE: 20210910
